FAERS Safety Report 8439980-6 (Version None)
Quarter: 2012Q2

REPORT INFORMATION
  Report Type: 
  Country: None (occurrence: None)
  Receive Date: 20120615
  Receipt Date: 20120607
  Transmission Date: 20120825
  Serious: Yes (Hospitalization)
  Sender: FDA-Public Use
  Company Number: US-US-EMD SERONO, INC.-7138814

PATIENT
  Sex: Female

DRUGS (4)
  1. INSULIN [Concomitant]
     Indication: DIABETES MELLITUS
  2. REBIF [Suspect]
     Indication: PRODUCT USED FOR UNKNOWN INDICATION
     Route: 058
     Dates: start: 20090121, end: 20120504
  3. REBIF [Suspect]
     Route: 058
     Dates: start: 20120514
  4. DIABETIC AGENT [Concomitant]
     Indication: DIABETES MELLITUS
     Route: 048

REACTIONS (3)
  - INJECTION SITE HAEMATOMA [None]
  - MALAISE [None]
  - HYPOTENSION [None]
